FAERS Safety Report 18914590 (Version 2)
Quarter: 2021Q1

REPORT INFORMATION
  Report Type: Report from Study
  Country: BR (occurrence: BR)
  Receive Date: 20210218
  Receipt Date: 20210225
  Transmission Date: 20210420
  Serious: Yes (Death, Other)
  Sender: FDA-Public Use
  Company Number: BR-GILEAD-2020-0508146

PATIENT
  Age: 36 Year
  Sex: Male
  Weight: 150 kg

DRUGS (50)
  1. HYPROMELLOSE [Concomitant]
     Active Substance: HYPROMELLOSES
  2. FENOTEROL [Concomitant]
     Active Substance: FENOTEROL
  3. DIPYRONE [Concomitant]
     Active Substance: DIPYRONE
  4. HYDROCORTISONE. [Concomitant]
     Active Substance: HYDROCORTISONE
  5. LIDOCAINE. [Concomitant]
     Active Substance: LIDOCAINE
  6. SPIRONOLACTONE. [Concomitant]
     Active Substance: SPIRONOLACTONE
  7. INSULIN [Concomitant]
     Active Substance: INSULIN NOS
  8. MIDAZOLAM. [Concomitant]
     Active Substance: MIDAZOLAM
  9. SIMVASTATIN. [Concomitant]
     Active Substance: SIMVASTATIN
  10. OXYGEN. [Concomitant]
     Active Substance: OXYGEN
     Dosage: 75 %
     Route: 007
     Dates: start: 20201127
  11. OXYGEN. [Concomitant]
     Active Substance: OXYGEN
     Dosage: 80 %
     Route: 007
     Dates: start: 20201125
  12. OXYGEN. [Concomitant]
     Active Substance: OXYGEN
     Dosage: 94 %
     Route: 007
     Dates: start: 20201128
  13. OXYGEN. [Concomitant]
     Active Substance: OXYGEN
     Dosage: 40 %
     Route: 007
     Dates: start: 20201130
  14. OXYGEN. [Concomitant]
     Active Substance: OXYGEN
     Dosage: 40 %
     Route: 007
     Dates: start: 20201129
  15. OXYGEN. [Concomitant]
     Active Substance: OXYGEN
     Dosage: 100 L/MIN
     Route: 055
     Dates: start: 20201121
  16. OXYGEN. [Concomitant]
     Active Substance: OXYGEN
     Dosage: 100 L/MIN
     Route: 055
     Dates: start: 20201129
  17. OXYGEN. [Concomitant]
     Active Substance: OXYGEN
     Dosage: 100 L/MIN
     Route: 055
     Dates: start: 20201120
  18. OXYGEN. [Concomitant]
     Active Substance: OXYGEN
     Dosage: 40 L/MIN
     Route: 055
     Dates: start: 20201120
  19. REMDESIVIR. [Suspect]
     Active Substance: REMDESIVIR
     Indication: COVID-19 PNEUMONIA
     Dosage: UNK
     Route: 042
     Dates: start: 20201120
  20. HYDRALAZINE [Concomitant]
     Active Substance: HYDRALAZINE HYDROCHLORIDE
  21. OXYGEN. [Concomitant]
     Active Substance: OXYGEN
     Dosage: 100 L/MIN
     Route: 055
     Dates: start: 20201122
  22. OXYGEN. [Concomitant]
     Active Substance: OXYGEN
     Dosage: 75 %
     Route: 007
     Dates: start: 20201126
  23. CALCIUM GLUCONATE. [Concomitant]
     Active Substance: CALCIUM GLUCONATE
  24. AMLODIPINE [Concomitant]
     Active Substance: AMLODIPINE BESYLATE
  25. DEXAMETHASONE. [Concomitant]
     Active Substance: DEXAMETHASONE
  26. FUROSEMIDE. [Concomitant]
     Active Substance: FUROSEMIDE
     Dosage: 4 ML
     Dates: start: 20201119, end: 20201123
  27. OMEPRAZOLE. [Concomitant]
     Active Substance: OMEPRAZOLE
  28. LOSARTAN. [Concomitant]
     Active Substance: LOSARTAN
  29. OXYGEN. [Concomitant]
     Active Substance: OXYGEN
     Dosage: 60 %
     Route: 007
     Dates: start: 20201124
  30. OXYGEN. [Concomitant]
     Active Substance: OXYGEN
     Dosage: 100 L/MIN
     Route: 055
     Dates: start: 20201127
  31. OXYGEN. [Concomitant]
     Active Substance: OXYGEN
     Dosage: 70 %
     Route: 007
     Dates: start: 20201124
  32. REMDESIVIR. [Suspect]
     Active Substance: REMDESIVIR
     Dosage: 100 ML, LAST REMDESIVIR ADMINISTERED PRIOR TO AE ONSET: 22?NOV?2020
     Route: 042
     Dates: start: 20201120
  33. TOCILIZUMAB. [Suspect]
     Active Substance: TOCILIZUMAB
     Dosage: 100 ML, LAST REMDESIVIR ADMINISTERED PRIOR TO AE ONSET: 22?NOV?2020
     Route: 042
     Dates: start: 20201120
  34. SODIUM CHLORIDE. [Concomitant]
     Active Substance: SODIUM CHLORIDE
  35. OXYGEN. [Concomitant]
     Active Substance: OXYGEN
     Dosage: 60 %
     Route: 007
     Dates: start: 20201123
  36. TOCILIZUMAB. [Suspect]
     Active Substance: TOCILIZUMAB
     Indication: COVID-19 PNEUMONIA
     Dosage: UNK
     Route: 042
     Dates: start: 20201120
  37. OXACILLIN [Concomitant]
     Active Substance: OXACILLIN SODIUM
  38. CARVEDILOL. [Concomitant]
     Active Substance: CARVEDILOL
     Dosage: 25 MG, QD
     Dates: start: 20201117, end: 20201119
  39. CISATRACURIUM. [Concomitant]
     Active Substance: CISATRACURIUM
  40. ENOXAPARIN [Concomitant]
     Active Substance: ENOXAPARIN
     Dosage: 40 MG, QD
  41. FENTANYL. [Concomitant]
     Active Substance: FENTANYL
  42. OXYGEN. [Concomitant]
     Active Substance: OXYGEN
     Dosage: 100 %
     Route: 055
     Dates: start: 20201121
  43. ACETYLSALICYLIC ACID [Concomitant]
     Active Substance: ASPIRIN
     Dosage: 100 MG, QD
     Dates: start: 20201118, end: 20201118
  44. AZITHROMYCIN ANHYDROUS. [Concomitant]
     Active Substance: AZITHROMYCIN ANHYDROUS
     Dosage: 500 MG, QD
     Dates: start: 20201124, end: 20201127
  45. CEFTAZIDIME. [Concomitant]
     Active Substance: CEFTAZIDIME
  46. IPRATROPIUM [Concomitant]
     Active Substance: IPRATROPIUM
  47. VASOPRESSIN. [Concomitant]
     Active Substance: VASOPRESSIN
  48. OXYGEN. [Concomitant]
     Active Substance: OXYGEN
     Dosage: 80 %
     Route: 007
     Dates: start: 20201201
  49. NORADRENALINE (NORPINEPHRINE) [Concomitant]
     Active Substance: NOREPINEPHRINE
     Dosage: 20 ML
     Dates: start: 20201123, end: 20201128
  50. OXYGEN. [Concomitant]
     Active Substance: OXYGEN
     Dosage: 100 L/MIN
     Route: 055
     Dates: start: 20201125

REACTIONS (2)
  - Renal impairment [Not Recovered/Not Resolved]
  - Pneumonia [Fatal]

NARRATIVE: CASE EVENT DATE: 20201123
